FAERS Safety Report 25742690 (Version 1)
Quarter: 2025Q3

REPORT INFORMATION
  Report Type: Spontaneous
  Country: US (occurrence: US)
  Receive Date: 20250830
  Receipt Date: 20250830
  Transmission Date: 20251021
  Serious: No
  Sender: SANOFI AVENTIS
  Company Number: US-SA-2025SA258817

PATIENT
  Age: 65 Year
  Sex: Male
  Weight: 158.75 kg

DRUGS (27)
  1. DUPIXENT [Suspect]
     Active Substance: DUPILUMAB
     Indication: Illness
     Dosage: 300 MG, QOW
     Route: 058
  2. PREDNISONE [Suspect]
     Active Substance: PREDNISONE
  3. BREZTRI AEROSPHERE [BUDESONIDE;FORMOTEROL FUMARATE;GLYCOPYRRONIUM BROM [Concomitant]
  4. FARXIGA [Concomitant]
     Active Substance: DAPAGLIFLOZIN PROPANEDIOL
  5. ENTRESTO [Concomitant]
     Active Substance: SACUBITRIL\VALSARTAN
  6. ATORVASTATIN CALCIUM [Concomitant]
     Active Substance: ATORVASTATIN CALCIUM
  7. DIGOXIN [Concomitant]
     Active Substance: DIGOXIN
  8. ALKA-SELTZER HEARTBURN [Concomitant]
     Active Substance: ANHYDROUS CITRIC ACID\SODIUM BICARBONATE
  9. ALBUTEROL SULFATE [Concomitant]
     Active Substance: ALBUTEROL SULFATE
  10. OZEMPIC [Concomitant]
     Active Substance: SEMAGLUTIDE
  11. CULTURELLE [Concomitant]
     Active Substance: LACTOBACILLUS RHAMNOSUS
  12. BENADRYL [Concomitant]
     Active Substance: DIPHENHYDRAMINE HYDROCHLORIDE
  13. APPLE CIDER VINEGAR [MALUS SPP. VINEGAR EXTRACT] [Concomitant]
  14. TURMERIC + BLACK PEPPER [Concomitant]
  15. CHONDROITIN SULFATE (BOVINE)\GLUCOSAMINE HYDROCHLORIDE [Concomitant]
     Active Substance: CHONDROITIN SULFATE (BOVINE)\GLUCOSAMINE HYDROCHLORIDE
  16. CRANBERRY [Concomitant]
     Active Substance: CRANBERRY
  17. NEURIVA BRAIN HEALTH PLUS [Concomitant]
  18. ALLOPURINOL [Concomitant]
     Active Substance: ALLOPURINOL
  19. VTAMA [Concomitant]
     Active Substance: TAPINAROF
  20. ONE A DAY MEN^S [ASCORBIC ACID;CALCIUM;CHROMIUM;FOLIC ACID;MAGNESIUM;P [Concomitant]
  21. TYLENOL [Concomitant]
     Active Substance: ACETAMINOPHEN
  22. SERTRALINE HYDROCHLORIDE [Concomitant]
     Active Substance: SERTRALINE HYDROCHLORIDE
  23. TRADJENTA [Concomitant]
     Active Substance: LINAGLIPTIN
  24. ATENOLOL [Concomitant]
     Active Substance: ATENOLOL
  25. EMTRICITABINE\TENOFOVIR DISOPROXIL [Concomitant]
     Active Substance: EMTRICITABINE\TENOFOVIR DISOPROXIL
  26. LASIX [Concomitant]
     Active Substance: FUROSEMIDE
  27. ELIQUIS [Concomitant]
     Active Substance: APIXABAN

REACTIONS (1)
  - Fungal skin infection [Unknown]
